FAERS Safety Report 18622283 (Version 1)
Quarter: 2020Q4

REPORT INFORMATION
  Report Type: Report from Study
  Country: US (occurrence: US)
  Receive Date: 20201216
  Receipt Date: 20201216
  Transmission Date: 20210114
  Serious: Yes (Other)
  Sender: FDA-Public Use
  Company Number: NVSC2020US322878

PATIENT
  Age: 69 Year
  Sex: Female

DRUGS (1)
  1. ENTRESTO [Suspect]
     Active Substance: SACUBITRIL\VALSARTAN
     Indication: MYOCARDIAL INFARCTION
     Dosage: 100 MG, BID
     Route: 048
     Dates: start: 202002

REACTIONS (12)
  - Product use in unapproved indication [Unknown]
  - Depression [Not Recovered/Not Resolved]
  - Stress [Not Recovered/Not Resolved]
  - Crying [Unknown]
  - Chest discomfort [Not Recovered/Not Resolved]
  - Overweight [Not Recovered/Not Resolved]
  - Mental disorder [Unknown]
  - Asthenia [Recovering/Resolving]
  - Suicidal behaviour [Unknown]
  - Weight decreased [Recovering/Resolving]
  - Peripheral swelling [Unknown]
  - Product dose omission issue [Not Recovered/Not Resolved]

NARRATIVE: CASE EVENT DATE: 202011
